FAERS Safety Report 7791315-8 (Version None)
Quarter: 2011Q4

REPORT INFORMATION
  Report Type: 
  Country: None (occurrence: None)
  Receive Date: 20111003
  Receipt Date: 20110920
  Transmission Date: 20120403
  Serious: No
  Sender: FDA-Public Use
  Company Number: US-BIOGENIDEC-2011BI036058

PATIENT
  Age: 40 Year
  Sex: Male

DRUGS (5)
  1. AVONEX [Suspect]
     Route: 030
     Dates: start: 20110701, end: 20110701
  2. AVONEX [Suspect]
     Route: 030
     Dates: start: 20110701
  3. IBUPROFEN (ADVIL) [Concomitant]
  4. AVONEX [Suspect]
     Indication: MULTIPLE SCLEROSIS
     Route: 030
     Dates: start: 20100201, end: 20110701
  5. NAPROXEN (ALEVE) [Concomitant]

REACTIONS (6)
  - AMNESIA [None]
  - NAUSEA [None]
  - DIZZINESS [None]
  - HOT FLUSH [None]
  - INFLUENZA LIKE ILLNESS [None]
  - FATIGUE [None]
